FAERS Safety Report 14830129 (Version 2)
Quarter: 2018Q2

REPORT INFORMATION
  Report Type: Report from Study
  Country: US (occurrence: US)
  Receive Date: 20180430
  Receipt Date: 20180521
  Transmission Date: 20180711
  Serious: Yes (Death, Hospitalization)
  Sender: FDA-Public Use
  Company Number: US-ACTELION-A-US2016-135448

PATIENT
  Age: 70 Year
  Sex: Female

DRUGS (4)
  1. K-DUR [Concomitant]
     Active Substance: POTASSIUM CHLORIDE
     Dosage: UNK
     Dates: start: 20170106
  2. OXYGEN. [Concomitant]
     Active Substance: OXYGEN
  3. FLONASE [Concomitant]
     Active Substance: FLUTICASONE PROPIONATE
     Dosage: UNK
     Dates: start: 20170109
  4. OPSUMIT [Suspect]
     Active Substance: MACITENTAN
     Indication: PULMONARY ARTERIAL HYPERTENSION
     Dosage: 10 MG, QD
     Route: 048
     Dates: start: 20160225, end: 20180418

REACTIONS (36)
  - Chest pain [Recovered/Resolved]
  - Fluid overload [Recovered/Resolved with Sequelae]
  - Weight increased [Recovered/Resolved with Sequelae]
  - Upper respiratory tract congestion [Recovered/Resolved]
  - Productive cough [Recovered/Resolved]
  - Chronic obstructive pulmonary disease [Recovered/Resolved with Sequelae]
  - Respiratory failure [Recovered/Resolved with Sequelae]
  - Dyspnoea [Recovered/Resolved with Sequelae]
  - Oxygen saturation decreased [Recovered/Resolved with Sequelae]
  - Fluid retention [Recovered/Resolved with Sequelae]
  - Hypoxia [Unknown]
  - Gastrointestinal haemorrhage [Unknown]
  - Death [Fatal]
  - Oedema peripheral [Recovered/Resolved]
  - Oxygen consumption increased [Recovered/Resolved with Sequelae]
  - Mitral valve incompetence [Recovered/Resolved]
  - Troponin increased [Recovered/Resolved with Sequelae]
  - Ocular discomfort [Recovered/Resolved]
  - Malaise [Recovered/Resolved]
  - Ocular hyperaemia [Recovered/Resolved]
  - Pyrexia [Recovered/Resolved with Sequelae]
  - Respiratory distress [Recovered/Resolved with Sequelae]
  - Fatigue [Not Recovered/Not Resolved]
  - Acute respiratory failure [Unknown]
  - Headache [Recovered/Resolved with Sequelae]
  - Cardiac failure [Recovered/Resolved with Sequelae]
  - Cough [Recovered/Resolved with Sequelae]
  - Melaena [Not Recovered/Not Resolved]
  - Mitral valve repair [Unknown]
  - Peripheral swelling [Recovered/Resolved with Sequelae]
  - Upper respiratory tract infection [Recovered/Resolved]
  - Left ventricular failure [Recovered/Resolved with Sequelae]
  - Pulmonary oedema [Unknown]
  - Anaemia [Not Recovered/Not Resolved]
  - Haematochezia [Unknown]
  - Pulmonary mass [Unknown]

NARRATIVE: CASE EVENT DATE: 20160311
